FAERS Safety Report 7352402-1 (Version None)
Quarter: 2011Q1

REPORT INFORMATION
  Report Type: 
  Country: None (occurrence: None)
  Receive Date: 20110315
  Receipt Date: 20110307
  Transmission Date: 20110831
  Serious: Yes (Hospitalization, Other)
  Sender: FDA-Public Use
  Company Number: US-GENZYME-THYM-1002347

PATIENT
  Age: 44 Year
  Sex: Female

DRUGS (6)
  1. THYMOGLOBULIN [Suspect]
     Indication: TRANSPLANT REJECTION
     Dosage: 1.5 MG/KG, QD
     Route: 042
  2. TACROLIMUS [Concomitant]
     Indication: IMMUNOSUPPRESSION
     Route: 065
  3. VALGANCICLOVIR [Concomitant]
     Indication: ANTIVIRAL PROPHYLAXIS
     Route: 065
  4. MYCOPHENOLATE MOFETIL [Concomitant]
     Indication: IMMUNOSUPPRESSION
     Route: 065
  5. THYMOGLOBULIN [Suspect]
     Indication: PROPHYLAXIS AGAINST TRANSPLANT REJECTION
     Route: 042
  6. PREDNISONE TAB [Concomitant]
     Indication: IMMUNOSUPPRESSION
     Route: 065

REACTIONS (7)
  - PANCREAS TRANSPLANT REJECTION [None]
  - CLOSTRIDIAL INFECTION [None]
  - DIARRHOEA [None]
  - PANNICULITIS [None]
  - PANCREATITIS ACUTE [None]
  - THERAPEUTIC RESPONSE DECREASED [None]
  - CYTOMEGALOVIRUS INFECTION [None]
